FAERS Safety Report 9417734 (Version 1)
Quarter: 2013Q3

REPORT INFORMATION
  Report Type: Spontaneous
  Country: US (occurrence: None)
  Receive Date: 20130722
  Receipt Date: 20130722
  Transmission Date: 20140515
  Serious: Yes (Hospitalization)
  Sender: FDA-Public Use
  Company Number: None

PATIENT
  Age: 9 Year
  Sex: Male
  Weight: 36.4 kg

DRUGS (3)
  1. CYCLOPHOSPHAMIDE [Suspect]
  2. DAUNORUBICIN [Suspect]
  3. DOXORUBICIN HYDROCHLORIDE [Suspect]

REACTIONS (1)
  - Glioblastoma [None]
